FAERS Safety Report 4440347-6 (Version None)
Quarter: 2004Q3

REPORT INFORMATION
  Report Type: 
  Country: None (occurrence: None)
  Receive Date: 20040831
  Receipt Date: 20040823
  Transmission Date: 20050211
  Serious: Yes (Hospitalization)
  Sender: FDA-Public Use
  Company Number: CIP04001846

PATIENT
  Age: 78 Year
  Sex: Female

DRUGS (2)
  1. FURADANTINE (NITROFURANTOIN, MACROCRYSTALS) CAPSULE, 100MG [Suspect]
     Indication: PROPHYLAXIS
     Dosage: 100 MG DAILY, ORAL
     Route: 048
     Dates: start: 20040401, end: 20040601
  2. ZESTORETIC [Suspect]
     Indication: HYPERTENSION
     Dosage: 1 DF DAILY, ORAL
     Route: 048
     Dates: end: 20040609

REACTIONS (3)
  - NEPHRITIS INTERSTITIAL [None]
  - RENAL FAILURE ACUTE [None]
  - THROMBOSIS [None]
